FAERS Safety Report 20730058 (Version 3)
Quarter: 2022Q2

REPORT INFORMATION
  Report Type: Spontaneous
  Country: IN (occurrence: IN)
  Receive Date: 20220420
  Receipt Date: 20220526
  Transmission Date: 20220721
  Serious: Yes (Hospitalization, Other)
  Sender: FDA-Public Use
  Company Number: IN-NOVARTISPH-NVSC2022IN089609

PATIENT
  Age: 51 Year
  Sex: Male

DRUGS (19)
  1. SIMULECT [Suspect]
     Active Substance: BASILIXIMAB
     Indication: Renal transplant
     Dosage: 20 MG, 1 VIAL
     Route: 042
     Dates: start: 20220328
  2. SIMULECT [Suspect]
     Active Substance: BASILIXIMAB
     Dosage: 20 MG
     Route: 042
     Dates: start: 20220401
  3. PREDNISOLONE [Concomitant]
     Active Substance: PREDNISOLONE
     Indication: Product used for unknown indication
     Dosage: 20 MG, QD (MORNING)
     Route: 065
  4. PREDNISOLONE [Concomitant]
     Active Substance: PREDNISOLONE
     Dosage: 15 MG, QD (MORNING)
     Route: 065
  5. PREDNISOLONE [Concomitant]
     Active Substance: PREDNISOLONE
     Dosage: 10 MG, QD (MORNING)
     Route: 065
  6. PREDNISOLONE [Concomitant]
     Active Substance: PREDNISOLONE
     Dosage: 5 MG, QD (MORNING)
     Route: 065
  7. TACROLIMUS [Concomitant]
     Active Substance: TACROLIMUS
     Indication: Product used for unknown indication
     Dosage: 2 DOSAGE FORM, BID (5 IN MORNING AND 5 AT NIGHT) (TILL REVIEW)
     Route: 065
  8. MYCOFIT-S [Concomitant]
     Indication: Product used for unknown indication
     Dosage: 2 DOSAGE FORM, BID (MORNING AND NIGHT) (TILL REVIEW)
     Route: 065
  9. PANTOCID [Concomitant]
     Indication: Product used for unknown indication
     Dosage: 1 DOSAGE FORM, QD (MORNING)
     Route: 065
  10. CLINDAMYCIN [Concomitant]
     Active Substance: CLINDAMYCIN
     Indication: Product used for unknown indication
     Dosage: 2 DOSAGE FORM, BID (MORNING AND NIGHT) (TILL REVIEW)
     Route: 065
  11. FOLVITE [Concomitant]
     Active Substance: FOLIC ACID
     Indication: Product used for unknown indication
     Dosage: 1 DOSAGE FORM, QD (MORNING) (TILL REVIEW)
     Route: 065
  12. BECOSULES [Concomitant]
     Indication: Product used for unknown indication
     Dosage: 1 DOSAGE FORM, QD (MORNING) (TILL REVIEW)
     Route: 065
  13. DILTIAZEM [Concomitant]
     Active Substance: DILTIAZEM
     Indication: Product used for unknown indication
     Dosage: 3 DOSAGE FORM, TID (TILL REVIEW)
     Route: 065
  14. ALPHADOL [Concomitant]
     Indication: Product used for unknown indication
     Dosage: 0.25 MCG, QD (MORNING) (TILL REVIEW)
     Route: 065
  15. SILODAL [Concomitant]
     Indication: Product used for unknown indication
     Dosage: 1 DOSAGE FORM, QD (NIGHT) (TILL REVIEW)
     Route: 065
  16. CALCIUM CARBONATE\CHOLECALCIFEROL [Concomitant]
     Active Substance: CALCIUM CARBONATE\CHOLECALCIFEROL
     Indication: Product used for unknown indication
     Dosage: 2 DOSAGE FORM, BID (TILL REVIEW)
     Route: 065
  17. OSTEOFOS [Concomitant]
     Indication: Product used for unknown indication
     Dosage: 35 MG, QW (ONCE A WEEK)
     Route: 065
  18. LANTUS [Concomitant]
     Active Substance: INSULIN GLARGINE
     Indication: Product used for unknown indication
     Dosage: 10 WITH BREAKFAST AND 10 UNITS WITH DINNER, BID (TILL REVIEW)
     Route: 065
  19. INSULIN LISPRO [Concomitant]
     Active Substance: INSULIN LISPRO
     Indication: Product used for unknown indication
     Dosage: 5 UNITS WITH BREAKFAST, LUNCH, DINNER, TID (TILL REVIEW)
     Route: 065

REACTIONS (11)
  - Kidney transplant rejection [Recovered/Resolved]
  - Thrombosis [Unknown]
  - Glomerulonephritis [Unknown]
  - Oedematous kidney [Unknown]
  - Tubulointerstitial nephritis [Unknown]
  - Capillaritis [Unknown]
  - Arteritis [Unknown]
  - Blood creatinine increased [Unknown]
  - Inflammation [Unknown]
  - Kidney congestion [Unknown]
  - Tissue infiltration [Unknown]

NARRATIVE: CASE EVENT DATE: 20220331
